FAERS Safety Report 16502674 (Version 1)
Quarter: 2019Q3

REPORT INFORMATION
  Report Type: Spontaneous
  Country: US (occurrence: US)
  Receive Date: 20190701
  Receipt Date: 20190701
  Transmission Date: 20191004
  Serious: Yes (Hospitalization, Other)
  Sender: FDA-Public Use
  Company Number: US-RISING PHARMACEUTICALS, INC.-2019RIS00336

PATIENT
  Age: 53 Year
  Sex: Female

DRUGS (4)
  1. DEXAMETHASONE. [Suspect]
     Active Substance: DEXAMETHASONE
     Dosage: 6 MG, 1X/DAY (4 MG IN THE MORNING, 2 MG AT NIGHT)
     Route: 065
  2. TRIMETHOPRIM-SULFAMETHOXAZOLE [Concomitant]
     Active Substance: SULFAMETHOXAZOLE\TRIMETHOPRIM
     Dosage: 800 MG, 3X/WEEK
     Route: 065
  3. DEXAMETHASONE. [Suspect]
     Active Substance: DEXAMETHASONE
     Indication: ANGIOEDEMA
     Dosage: 8 MG, 2X/DAY
     Route: 065
  4. TEMOZOLOMIDE. [Suspect]
     Active Substance: TEMOZOLOMIDE
     Indication: GLIOBLASTOMA
     Dosage: 75 MG/M2, 1X/DAY (3 WEEKS/CYCLE)

REACTIONS (5)
  - Brain abscess [Recovered/Resolved]
  - Pulmonary embolism [Recovered/Resolved]
  - Aspergillus infection [Recovered/Resolved]
  - Pulmonary cavitation [None]
  - Bone marrow failure [Recovered/Resolved]
